FAERS Safety Report 7313686-9 (Version None)
Quarter: 2011Q1

REPORT INFORMATION
  Report Type: 
  Country: None (occurrence: None)
  Receive Date: 20110225
  Receipt Date: 20110221
  Transmission Date: 20110831
  Serious: Yes (Other)
  Sender: FDA-Public Use
  Company Number: BR-PFIZER INC-2010163320

PATIENT
  Age: 57 Year
  Sex: Male
  Weight: 80 kg

DRUGS (3)
  1. CHAMPIX [Suspect]
     Indication: TOBACCO USER
     Dosage: 0.5 MG, 1X/DAY
     Route: 048
     Dates: start: 20101122
  2. CHAMPIX [Suspect]
     Dosage: 1 MG, 2X/DAY
     Route: 048
  3. METFORMIN HYDROCHLORIDE [Concomitant]
     Indication: DIABETES MELLITUS
     Dosage: 500 MG, 1X/DAY IN THE MORNING

REACTIONS (11)
  - MIDDLE INSOMNIA [None]
  - DRUG DOSE OMISSION [None]
  - MEMORY IMPAIRMENT [None]
  - LISTLESS [None]
  - BLOOD PRESSURE DECREASED [None]
  - STRESS [None]
  - FATIGUE [None]
  - SOMNOLENCE [None]
  - NERVOUSNESS [None]
  - ANGER [None]
  - PAIN IN EXTREMITY [None]
